FAERS Safety Report 6511255-1 (Version None)
Quarter: 2009Q4

REPORT INFORMATION
  Report Type: 
  Country: None (occurrence: None)
  Receive Date: 20091222
  Receipt Date: 20090318
  Transmission Date: 20100525
  Serious: No
  Sender: FDA-Public Use
  Company Number: US-ASTRAZENECA-2009UW07025

PATIENT
  Age: 41 Year
  Sex: Female
  Weight: 86.2 kg

DRUGS (2)
  1. CRESTOR [Suspect]
     Route: 048
     Dates: start: 20090316
  2. LOTENSIN [Concomitant]
     Indication: HYPERTENSION

REACTIONS (1)
  - EPISTAXIS [None]
